FAERS Safety Report 23634555 (Version 2)
Quarter: 2024Q2

REPORT INFORMATION
  Report Type: Report from Study
  Country: IT (occurrence: IT)
  Receive Date: 20240315
  Receipt Date: 20240404
  Transmission Date: 20240716
  Serious: Yes (Other)
  Sender: FDA-Public Use
  Company Number: IT-ABBVIE-5678914

PATIENT
  Age: 70 Year
  Sex: Female

DRUGS (2)
  1. CARBIDOPA\LEVODOPA [Suspect]
     Active Substance: CARBIDOPA\LEVODOPA
     Indication: Parkinson^s disease
     Dosage: DAILY DOSE (MG/DAY): 1030; PUMP SETTING: MD: 10,5 ML PLUS 3ML; CR:2,5 ML/H (14H) ; ED: 3 ML
     Route: 050
     Dates: start: 20221018
  2. CARBIDOPA\LEVODOPA [Suspect]
     Active Substance: CARBIDOPA\LEVODOPA

REACTIONS (1)
  - Osteoarthritis [Unknown]
